FAERS Safety Report 24647077 (Version 1)
Quarter: 2024Q4

REPORT INFORMATION
  Report Type: Report from Study
  Country: DE (occurrence: DE)
  Receive Date: 20241121
  Receipt Date: 20241121
  Transmission Date: 20250115
  Serious: Yes (Hospitalization)
  Sender: ACCORD
  Company Number: None

PATIENT
  Sex: Female

DRUGS (2)
  1. METHOTREXATE [Suspect]
     Active Substance: METHOTREXATE
     Indication: Product used for unknown indication
     Dosage: 15 MG, QW
  2. RITUXIMAB [Suspect]
     Active Substance: RITUXIMAB
     Indication: Rheumatoid arthritis
     Dosage: 1000 MG, RIXATHON
     Dates: start: 20211207

REACTIONS (10)
  - Rheumatoid arthritis [Unknown]
  - Osteopenia [Unknown]
  - Weight decreased [Unknown]
  - Fatigue [Unknown]
  - Reactive gastropathy [Unknown]
  - Vomiting [Unknown]
  - Iron deficiency anaemia [Recovered/Resolved]
  - Adrenal adenoma [Unknown]
  - Renal cyst [Unknown]
  - Tibia fracture [Not Recovered/Not Resolved]
